FAERS Safety Report 5394944-4 (Version None)
Quarter: 2007Q3

REPORT INFORMATION
  Report Type: 
  Country: None (occurrence: None)
  Receive Date: 20070720
  Receipt Date: 20070720
  Transmission Date: 20080115
  Serious: Yes (Other)
  Sender: FDA-Public Use
  Company Number: None

PATIENT
  Age: 83 Year
  Sex: Male
  Weight: 65.7716 kg

DRUGS (1)
  1. SIMVASTATIN [Suspect]
     Indication: DYSLIPIDAEMIA
     Dosage: 20MGS DAILY ORAL
     Route: 048
     Dates: start: 20070201

REACTIONS (2)
  - NONSPECIFIC REACTION [None]
  - PHARMACEUTICAL PRODUCT COMPLAINT [None]
